FAERS Safety Report 12632962 (Version 2)
Quarter: 2016Q3

REPORT INFORMATION
  Report Type: Spontaneous
  Country: US (occurrence: US)
  Receive Date: 20160808
  Receipt Date: 20160808
  Transmission Date: 20161109
  Serious: No
  Sender: FDA-Public Use
  Company Number: US-BEH-2016057785

PATIENT
  Sex: Female
  Weight: 96 kg

DRUGS (16)
  1. HIZENTRA [Suspect]
     Active Substance: HUMAN IMMUNOGLOBULIN G
     Indication: IMMUNODEFICIENCY COMMON VARIABLE
     Route: 058
  2. ADVAIR HFA [Concomitant]
     Active Substance: FLUTICASONE PROPIONATE\SALMETEROL XINAFOATE
  3. CRESTOR [Concomitant]
     Active Substance: ROSUVASTATIN CALCIUM
  4. EPIPEN [Concomitant]
     Active Substance: EPINEPHRINE
  5. FERROUS SULFATE. [Concomitant]
     Active Substance: FERROUS SULFATE
  6. PLAVIX [Concomitant]
     Active Substance: CLOPIDOGREL BISULFATE
  7. DUONEB [Concomitant]
     Active Substance: ALBUTEROL SULFATE\IPRATROPIUM BROMIDE
  8. ACETAMINOPHEN. [Concomitant]
     Active Substance: ACETAMINOPHEN
  9. LIDOCAINE. [Concomitant]
     Active Substance: LIDOCAINE
  10. PROZAC [Concomitant]
     Active Substance: FLUOXETINE HYDROCHLORIDE
  11. PEPCID [Concomitant]
     Active Substance: FAMOTIDINE
  12. NASONEX [Concomitant]
     Active Substance: MOMETASONE FUROATE
  13. DIPHENHYDRAMINE. [Concomitant]
     Active Substance: DIPHENHYDRAMINE
  14. METFORMIN [Concomitant]
     Active Substance: METFORMIN HYDROCHLORIDE
  15. VERAPAMIL [Concomitant]
     Active Substance: VERAPAMIL HYDROCHLORIDE
  16. ASTEPRO [Concomitant]
     Active Substance: AZELASTINE HYDROCHLORIDE

REACTIONS (1)
  - Sinusitis [Unknown]
